FAERS Safety Report 24077146 (Version 2)
Quarter: 2025Q2

REPORT INFORMATION
  Report Type: Report from Study
  Country: ES (occurrence: ES)
  Receive Date: 20240711
  Receipt Date: 20250512
  Transmission Date: 20250717
  Serious: Yes (Death, Other)
  Sender: ROCHE
  Company Number: ES-ROCHE-10000021276

PATIENT

DRUGS (4)
  1. ATEZOLIZUMAB [Suspect]
     Active Substance: ATEZOLIZUMAB
     Indication: Hepatocellular carcinoma
     Route: 065
  2. BEVACIZUMAB [Suspect]
     Active Substance: BEVACIZUMAB
     Indication: Hepatocellular carcinoma
     Route: 065
  3. DURVALUMAB [Suspect]
     Active Substance: DURVALUMAB
     Indication: Hepatocellular carcinoma
     Route: 065
  4. TREMELIMUMAB [Suspect]
     Active Substance: TREMELIMUMAB
     Indication: Hepatocellular carcinoma
     Route: 065

REACTIONS (35)
  - Diarrhoea [Unknown]
  - Colitis [Unknown]
  - Hypertension [Unknown]
  - Encephalitis [Fatal]
  - Hepatitis [Unknown]
  - Hyperbilirubinaemia [Unknown]
  - Lipase increased [Unknown]
  - Pancreatitis acute [Unknown]
  - Bleeding varicose vein [Unknown]
  - Intestinal perforation [Unknown]
  - Haemoperitoneum [Unknown]
  - Acute kidney injury [Unknown]
  - Myocarditis [Fatal]
  - Transient ischaemic attack [Unknown]
  - Skin ulcer [Unknown]
  - Hypothyroidism [Unknown]
  - Polymyalgia rheumatica [Unknown]
  - Arthritis [Unknown]
  - Myositis [Fatal]
  - Hypophysitis [Unknown]
  - Aspartate aminotransferase increased [Unknown]
  - Proteinuria [Unknown]
  - Haemorrhage [Unknown]
  - Myocardial infarction [Unknown]
  - Atrial fibrillation [Unknown]
  - Intermittent claudication [Unknown]
  - Rash [Unknown]
  - Pruritus [Unknown]
  - Anal fissure [Unknown]
  - Lichen planus [Unknown]
  - Hyperthyroidism [Unknown]
  - Diabetes mellitus [Unknown]
  - Pancytopenia [Unknown]
  - Pneumonitis [Unknown]
  - Fatigue [Unknown]
